FAERS Safety Report 9166157 (Version 2)
Quarter: 2013Q2

REPORT INFORMATION
  Report Type: Spontaneous
  Country: US (occurrence: US)
  Receive Date: 20130315
  Receipt Date: 20130403
  Transmission Date: 20140414
  Serious: Yes (Other)
  Sender: FDA-Public Use
  Company Number: US-TARO-2013P1002669

PATIENT
  Age: 68 Year
  Sex: Male
  Weight: 94.35 kg

DRUGS (8)
  1. AMIODARONE HCL [Suspect]
     Indication: ATRIAL FIBRILLATION
     Route: 048
     Dates: start: 2006
  2. AMIODARONE HCL [Suspect]
     Indication: ATRIAL FLUTTER
     Route: 048
     Dates: start: 2006
  3. AMIODARONE HCL [Suspect]
     Indication: ATRIAL FIBRILLATION
     Route: 048
  4. AMIODARONE HCL [Suspect]
     Indication: ATRIAL FLUTTER
     Route: 048
  5. AMIODARONE [Suspect]
     Indication: ATRIAL FIBRILLATION
  6. AMIODARONE [Suspect]
     Indication: ATRIAL FLUTTER
  7. UNSPECIFIED BLOOD PRESSURE MEDICATIONS [Concomitant]
  8. UNSPECIFIED CHOLESTEROL MEDICATIONS [Concomitant]

REACTIONS (12)
  - Dry eye [Recovered/Resolved]
  - Skin papilloma [Not Recovered/Not Resolved]
  - Eye pruritus [Unknown]
  - Rosacea [Not Recovered/Not Resolved]
  - Hypersensitivity [Unknown]
  - Arrhythmia [Recovered/Resolved]
  - Blood pressure decreased [Recovered/Resolved]
  - Product substitution issue [Recovered/Resolved]
  - Influenza [Recovered/Resolved]
  - Syncope [Recovered/Resolved]
  - Dehydration [Recovered/Resolved]
  - Eye laser surgery [Unknown]
